FAERS Safety Report 5723860-0 (Version None)
Quarter: 2008Q2

REPORT INFORMATION
  Report Type: 
  Country: None (occurrence: None)
  Receive Date: 20080429
  Receipt Date: 20080429
  Transmission Date: 20081010
  Serious: Yes (Other)
  Sender: FDA-Public Use
  Company Number: None

PATIENT
  Age: 34 Year
  Sex: Female
  Weight: 73.0291 kg

DRUGS (1)
  1. YAZ [Suspect]

REACTIONS (9)
  - EMOTIONAL DISORDER [None]
  - FATIGUE [None]
  - HEADACHE [None]
  - MEMORY IMPAIRMENT [None]
  - NERVOUS SYSTEM DISORDER [None]
  - NIGHTMARE [None]
  - SOMNOLENCE [None]
  - SPEECH DISORDER [None]
  - URINARY TRACT INFECTION [None]
